FAERS Safety Report 13034670 (Version 3)
Quarter: 2017Q1

REPORT INFORMATION
  Report Type: Spontaneous
  Country: HK (occurrence: HK)
  Receive Date: 20161216
  Receipt Date: 20170106
  Transmission Date: 20170428
  Serious: Yes (Death)
  Sender: FDA-Public Use
  Company Number: HK-B.I. PHARMACEUTICALS,INC./RIDGEFIELD-2016-BI-085196

PATIENT
  Age: 65 Year
  Sex: Male

DRUGS (2)
  1. PREDISOLONE [Concomitant]
     Active Substance: PREDNISOLONE
     Indication: NON-SMALL CELL LUNG CANCER
     Route: 065
     Dates: start: 201406
  2. AFATINIB [Suspect]
     Active Substance: AFATINIB
     Indication: NON-SMALL CELL LUNG CANCER
     Route: 065
     Dates: start: 20140601

REACTIONS (1)
  - Interstitial lung disease [Fatal]

NARRATIVE: CASE EVENT DATE: 20150115
